FAERS Safety Report 9667463 (Version 1)
Quarter: 2013Q4

REPORT INFORMATION
  Report Type: Spontaneous
  Country: US (occurrence: US)
  Receive Date: 20131101
  Receipt Date: 20131101
  Transmission Date: 20140711
  Serious: Yes (Other)
  Sender: FDA-Public Use
  Company Number: US-SAVIENT-2012S1000067

PATIENT
  Age: 46 Year
  Sex: Male

DRUGS (9)
  1. KRYSTEXXA INJECTION [Suspect]
     Indication: GOUTY TOPHUS
     Route: 042
     Dates: start: 20120607, end: 20120607
  2. KRYSTEXXA INJECTION [Suspect]
     Indication: GOUTY TOPHUS
     Route: 042
     Dates: start: 20120524, end: 20120524
  3. TYLENOL /00020001/ [Concomitant]
     Indication: PREMEDICATION
     Route: 048
     Dates: start: 20120607, end: 20120607
  4. TYLENOL /00020001/ [Concomitant]
     Indication: PREMEDICATION
     Route: 048
     Dates: start: 20120524, end: 20120524
  5. BENADRYL /01563701/ [Concomitant]
     Indication: PREMEDICATION
     Route: 048
     Dates: start: 20120607, end: 20120607
  6. BENADRYL /01563701/ [Concomitant]
     Indication: PREMEDICATION
     Route: 048
     Dates: start: 20120524, end: 20120524
  7. SOLU-MEDROL [Concomitant]
     Indication: PREMEDICATION
     Route: 042
     Dates: start: 20120607, end: 20120607
  8. SOLU-MEDROL [Concomitant]
     Indication: PREMEDICATION
     Route: 042
     Dates: start: 20120524, end: 20120524
  9. ASPIRIN [Concomitant]
     Indication: MYOCARDIAL INFARCTION
     Dates: start: 2012

REACTIONS (2)
  - Anaphylactic reaction [Recovered/Resolved]
  - Therapeutic response decreased [Unknown]
